FAERS Safety Report 6402797-8 (Version None)
Quarter: 2009Q4

REPORT INFORMATION
  Report Type: 
  Country: None (occurrence: None)
  Receive Date: 20091016
  Receipt Date: 20070313
  Transmission Date: 20100525
  Serious: Yes (Disabling)
  Sender: FDA-Public Use
  Company Number: US-ASTRAZENECA-2006UW10712

PATIENT
  Sex: Female
  Weight: 78.5 kg

DRUGS (10)
  1. SEROQUEL [Suspect]
     Dosage: 25-400 MG
     Route: 048
     Dates: start: 20020322
  2. LAMICTAL [Concomitant]
     Dates: start: 20031008
  3. PREVACID [Concomitant]
     Dates: start: 20031215
  4. SYNTHROID [Concomitant]
     Dosage: 0.05-0.5 MG
     Route: 048
     Dates: start: 20040625
  5. LIPITOR [Concomitant]
     Dosage: 05-10 MG
     Route: 048
     Dates: start: 20030716
  6. EFFEXOR [Concomitant]
     Dates: start: 20020816
  7. LITHIUM CARBONATE [Concomitant]
     Route: 048
     Dates: start: 20040817
  8. AMARYL [Concomitant]
     Dosage: 2-8 MG
     Route: 048
     Dates: start: 20020813
  9. AVANDIA [Concomitant]
     Dosage: 2-4 MG
     Dates: start: 20060215
  10. COZAAR [Concomitant]
     Dosage: 50-100 MG
     Route: 048
     Dates: start: 20020813

REACTIONS (1)
  - ILL-DEFINED DISORDER [None]
